FAERS Safety Report 5587467-0 (Version None)
Quarter: 2008Q1

REPORT INFORMATION
  Report Type: 
  Country: None (occurrence: None)
  Receive Date: 20080110
  Receipt Date: 20080108
  Transmission Date: 20080703
  Serious: Yes (Life-Threatening, Hospitalization)
  Sender: FDA-Public Use
  Company Number: ES-BOEHRINGER INGELHEIM PHARMACEUTICALS, INC.-2007-DE-02222DE

PATIENT
  Sex: Male
  Weight: 90 kg

DRUGS (24)
  1. AGGRENOX [Suspect]
     Indication: EMBOLIC STROKE
     Route: 048
     Dates: start: 20070307
  2. AGGRENOX [Suspect]
     Indication: HYPERTENSION
     Route: 048
     Dates: start: 20070310, end: 20070413
  3. AGGRENOX [Suspect]
     Route: 048
     Dates: start: 20070425, end: 20070425
  4. XAGRID [Suspect]
     Indication: THROMBOCYTHAEMIA
     Route: 048
     Dates: start: 20020101, end: 20070414
  5. XAGRID [Suspect]
     Indication: MYELOFIBROSIS
     Route: 048
     Dates: start: 20070423
  6. CANDESARTAN CILEXETIL [Concomitant]
     Indication: HYPERTENSION
     Dates: start: 20030101, end: 20070414
  7. ATACAND HCT [Concomitant]
     Indication: HYPERTENSION
     Dates: start: 20070422
  8. ATACAND HCT [Concomitant]
     Indication: EMBOLIC STROKE
  9. TRIAMTEREN HCT [Concomitant]
     Indication: HYPERTENSION
     Dosage: TRIAMTEREN 50 MG, HYDROCHLOROTHIAZID 25 MG.  TRIAMTERENE 50 MG, HYDROCHLOROTHIAZID 25 MG
     Dates: start: 20070310
  10. TRIAMTEREN HCT [Concomitant]
     Indication: EMBOLIC STROKE
     Dosage: TRIAMTERENE 25 MG, HYDROCHLOROTHIAZID 12,5MG
     Dates: end: 20070414
  11. SORTIS [Concomitant]
     Indication: HYPERCHOLESTEROLAEMIA
     Route: 048
     Dates: start: 20070314, end: 20070413
  12. SORTIS [Concomitant]
     Route: 048
     Dates: start: 20070422
  13. BISOPROLOL [Concomitant]
     Indication: HYPERTENSION
     Route: 048
     Dates: start: 20070307, end: 20070414
  14. BISOPROLOL [Concomitant]
     Route: 048
     Dates: start: 20070422
  15. ASPIRIN [Concomitant]
     Indication: CEREBROVASCULAR ACCIDENT
     Dates: start: 19950101, end: 20070307
  16. ASPIRIN [Concomitant]
     Route: 048
     Dates: start: 20070315, end: 20070413
  17. ASPIRIN [Concomitant]
     Route: 048
     Dates: start: 20070420
  18. SIMVASTATIN [Concomitant]
     Indication: HYPERCHOLESTEROLAEMIA
     Route: 048
     Dates: start: 20070307, end: 20070313
  19. ZOMETA [Concomitant]
     Indication: PROSTATE CANCER
     Dosage: 1 AMPOULES EVERY 3RD MONTH
     Route: 030
     Dates: start: 20050101
  20. TRENANTONE [Concomitant]
     Indication: PROSTATE CANCER
     Dosage: 1 AMPOULES EVERY 3RD MONTH
     Route: 030
     Dates: start: 20050101
  21. SYNERVIT [Concomitant]
     Indication: PROPHYLAXIS
     Route: 048
     Dates: start: 20050101
  22. AMLODIPINE [Concomitant]
     Indication: HYPERTENSION
     Route: 048
     Dates: start: 20070422
  23. PIRETANID [Concomitant]
     Indication: HYPERTENSION
     Route: 048
     Dates: start: 20070422
  24. BISPHOSPHONATE [Concomitant]
     Indication: OSTEOPOROSIS PROPHYLAXIS

REACTIONS (5)
  - BLOOD CREATININE DECREASED [None]
  - DIARRHOEA [None]
  - DRUG INTOLERANCE [None]
  - HEADACHE [None]
  - RENAL FAILURE [None]
